FAERS Safety Report 8048536-9 (Version None)
Quarter: 2012Q1

REPORT INFORMATION
  Report Type: 
  Country: None (occurrence: None)
  Receive Date: 20120117
  Receipt Date: 20120115
  Transmission Date: 20120608
  Serious: No
  Sender: FDA-Public Use
  Company Number: US-PFIZER INC-2012011476

PATIENT
  Sex: Male

DRUGS (7)
  1. UROXATRAL [Concomitant]
     Dosage: UNK
  2. VALIUM [Concomitant]
     Dosage: UNK
  3. SUTENT [Suspect]
     Indication: RENAL CANCER
     Dosage: 50 MG, 1X/DAY
     Route: 048
     Dates: start: 20111206
  4. GABAPENTIN [Concomitant]
     Dosage: UNK
  5. CORDARONE [Concomitant]
     Dosage: UNK
  6. PROPECIA [Concomitant]
     Dosage: UNK
  7. ZOCOR [Concomitant]
     Dosage: UNK

REACTIONS (1)
  - EYE OEDEMA [None]
